FAERS Safety Report 25595939 (Version 1)
Quarter: 2025Q3

REPORT INFORMATION
  Report Type: Spontaneous
  Country: GB (occurrence: GB)
  Receive Date: 20250723
  Receipt Date: 20250723
  Transmission Date: 20251020
  Serious: Yes (Life-Threatening, Other)
  Sender: ELI LILLY AND COMPANY
  Company Number: None

PATIENT
  Age: 37 Year
  Sex: Female
  Weight: 64 kg

DRUGS (2)
  1. MOUNJARO [Suspect]
     Active Substance: TIRZEPATIDE
     Indication: Weight control
     Route: 065
     Dates: start: 20250512, end: 20250717
  2. ESTRADIOL\NORETHINDRONE ACETATE [Concomitant]
     Active Substance: ESTRADIOL\NORETHINDRONE ACETATE
     Indication: Menopause
     Dates: start: 20240812

REACTIONS (3)
  - Abdominal pain [Not Recovered/Not Resolved]
  - Pancreatitis [Unknown]
  - Vomiting [Unknown]

NARRATIVE: CASE EVENT DATE: 20250714
